FAERS Safety Report 11682378 (Version 2)
Quarter: 2015Q4

REPORT INFORMATION
  Report Type: Report from Study
  Country: US (occurrence: US)
  Receive Date: 20151029
  Receipt Date: 20151113
  Transmission Date: 20160304
  Serious: Yes (Other)
  Sender: FDA-Public Use
  Company Number: US-009507513-1510USA014303

PATIENT

DRUGS (6)
  1. ZOLINZA [Suspect]
     Active Substance: VORINOSTAT
     Indication: DIFFUSE LARGE B-CELL LYMPHOMA REFRACTORY
     Dosage: 200 MG/DAY TO 1000 MG/DAY (DAYS 8 TO 3)
     Route: 048
  2. GEMCITABINE [Suspect]
     Active Substance: GEMCITABINE\GEMCITABINE HYDROCHLORIDE
     Dosage: ON DAYS -8 AND -3 AS A LOADING BOLUS OF 75 MG/M2
  3. BUSULFAN [Suspect]
     Active Substance: BUSULFAN
     Dosage: TEST DOSE OF 32 MG/M2 OVER 60 MINUTES DURING THE PREADMISSION WEEK
     Route: 042
  4. MELPHALAN [Suspect]
     Active Substance: MELPHALAN
     Dosage: 60 MG/M2/DAY OVER 30 MINUTES ON DAYS -3 AND -2
  5. ZOLINZA [Suspect]
     Active Substance: VORINOSTAT
     Indication: T-CELL LYMPHOMA REFRACTORY
  6. BUSULFAN [Suspect]
     Active Substance: BUSULFAN
     Dosage: OVER 3 HOURS FROM DAYS -8 TO -5 TARGETING AN AVERAGE DAILY AREA UNDER THE CURVE OF 4000 MICROM-MIN
     Route: 042

REACTIONS (1)
  - Rash [Recovered/Resolved]
